FAERS Safety Report 14483883 (Version 2)
Quarter: 2018Q1

REPORT INFORMATION
  Report Type: Spontaneous
  Country: ES (occurrence: ES)
  Receive Date: 20180205
  Receipt Date: 20180207
  Transmission Date: 20180509
  Serious: Yes (Death)
  Sender: FDA-Public Use
  Company Number: ES-ROCHE-2062255

PATIENT
  Age: 29 Year
  Sex: Male

DRUGS (1)
  1. ALECENSA [Suspect]
     Active Substance: ALECTINIB HYDROCHLORIDE
     Indication: FIBROSARCOMA
     Route: 065

REACTIONS (3)
  - Intestinal obstruction [Fatal]
  - Off label use [Fatal]
  - Intentional product use issue [Fatal]
